FAERS Safety Report 19141877 (Version 1)
Quarter: 2021Q2

REPORT INFORMATION
  Report Type: Spontaneous
  Country: US (occurrence: US)
  Receive Date: 20210415
  Receipt Date: 20210415
  Transmission Date: 20210717
  Serious: No
  Sender: FDA-Public Use
  Company Number: US-PFIZER INC-2021381933

PATIENT
  Age: 1 Year
  Sex: Female

DRUGS (2)
  1. EUCRISA [Suspect]
     Active Substance: CRISABOROLE
     Indication: DERMATITIS ATOPIC
     Dosage: UNK UNK, AS NEEDED ((ONE) APPLICATION TWO TIMES DALLY)
     Route: 061
     Dates: start: 20210401
  2. EUCRISA [Suspect]
     Active Substance: CRISABOROLE
     Indication: ECZEMA

REACTIONS (3)
  - Rash pruritic [Unknown]
  - Rash erythematous [Unknown]
  - Streptococcus test positive [Unknown]
